FAERS Safety Report 5953740-7 (Version None)
Quarter: 2008Q4

REPORT INFORMATION
  Report Type: 
  Country: None (occurrence: None)
  Receive Date: 20081114
  Receipt Date: 20081104
  Transmission Date: 20090506
  Serious: Yes (Hospitalization)
  Sender: FDA-Public Use
  Company Number: IL-CELGENEUS-AZAIL200800359

PATIENT
  Age: 59 Year
  Sex: Female
  Weight: 60 kg

DRUGS (5)
  1. VIDAZA [Suspect]
     Indication: MYELODYSPLASTIC SYNDROME
     Route: 058
     Dates: start: 20080907, end: 20080911
  2. VIDAZA [Suspect]
     Indication: LEUKAEMIA
     Route: 058
     Dates: start: 20080727, end: 20080731
  3. BLOOD TRANSFUSION [Suspect]
     Indication: DRUG USE FOR UNKNOWN INDICATION
     Route: 058
  4. INSULIN [Concomitant]
     Route: 065
  5. STEROIDS [Concomitant]
     Route: 065

REACTIONS (5)
  - INJECTION SITE REACTION [None]
  - PANCYTOPENIA [None]
  - PERICARDIAL EFFUSION [None]
  - PLEURAL EFFUSION [None]
  - SEPSIS [None]
